FAERS Safety Report 8465898-9 (Version None)
Quarter: 2012Q2

REPORT INFORMATION
  Report Type: 
  Country: None (occurrence: None)
  Receive Date: 20120619
  Receipt Date: 20120606
  Transmission Date: 20120825
  Serious: Yes (Other)
  Sender: FDA-Public Use
  Company Number: ENTC2012-0087

PATIENT
  Sex: Female

DRUGS (5)
  1. PRAMIPEXOLE DIHYDROCHLORIDE [Concomitant]
  2. MOTILIUM [Concomitant]
  3. MOVIPREP [Concomitant]
  4. MIRTAZAPINE [Concomitant]
  5. STALEVO(LEVODOPA, CARBIIDOPA, ENTACAPONE) [Suspect]
     Indication: PARKINSON'S DISEASE
     Dosage: 150/37.5/200 MG, 6 TIMES DAILY ORAL
     Route: 048

REACTIONS (3)
  - MEDICATION RESIDUE [None]
  - CONDITION AGGRAVATED [None]
  - PARKINSON'S DISEASE [None]
